FAERS Safety Report 6428018-8 (Version None)
Quarter: 2009Q4

REPORT INFORMATION
  Report Type: 
  Country: None (occurrence: None)
  Receive Date: 20091105
  Receipt Date: 20091029
  Transmission Date: 20100525
  Serious: Yes (Other)
  Sender: FDA-Public Use
  Company Number: GB-BRISTOL-MYERS SQUIBB COMPANY-14835912

PATIENT

DRUGS (2)
  1. ETOPOSIDE [Suspect]
     Indication: METASTASES TO MENINGES
  2. TOPOTECAN HCL [Suspect]
     Indication: METASTASES TO MENINGES

REACTIONS (1)
  - RENAL FAILURE ACUTE [None]
